FAERS Safety Report 17733879 (Version 1)
Quarter: 2020Q2

REPORT INFORMATION
  Report Type: Spontaneous
  Country: US (occurrence: US)
  Receive Date: 20200501
  Receipt Date: 20200501
  Transmission Date: 20200714
  Serious: Yes (Hospitalization, Other)
  Sender: FDA-Public Use
  Company Number: US-EMCURE PHARMACEUTICALS LTD-2020-EPL-000516

PATIENT
  Age: 64 Year
  Sex: Female

DRUGS (18)
  1. PANTOPRAZOLE [Concomitant]
     Active Substance: PANTOPRAZOLE
  2. METOPROLOL SUCCINATE. [Concomitant]
     Active Substance: METOPROLOL SUCCINATE
  3. CETIRIZINE [Concomitant]
     Active Substance: CETIRIZINE HYDROCHLORIDE
  4. FLUTICASONE. [Concomitant]
     Active Substance: FLUTICASONE
  5. FERROUS SULFATE. [Concomitant]
     Active Substance: FERROUS SULFATE
  6. PRAVASTATIN. [Concomitant]
     Active Substance: PRAVASTATIN
  7. HYDRALAZINE HYDROCHLORIDE. [Suspect]
     Active Substance: HYDRALAZINE HYDROCHLORIDE
     Indication: HYPERTENSION
     Dosage: 100 MILLIGRAM, TID DAILY PAST 8 YEARS
  8. IBUPROFEN. [Concomitant]
     Active Substance: IBUPROFEN
  9. LOSARTAN. [Concomitant]
     Active Substance: LOSARTAN
  10. GABAPENTIN. [Concomitant]
     Active Substance: GABAPENTIN
  11. TRAZODONE [Concomitant]
     Active Substance: TRAZODONE HYDROCHLORIDE
  12. CYCLOBENZAPRINE. [Concomitant]
     Active Substance: CYCLOBENZAPRINE
  13. DOCUSATE SODIUM. [Concomitant]
     Active Substance: DOCUSATE SODIUM
  14. CHLORZOXAZONE. [Concomitant]
     Active Substance: CHLORZOXAZONE
  15. AMLODIPINE [Concomitant]
     Active Substance: AMLODIPINE BESYLATE
  16. AMIODARONE [Concomitant]
     Active Substance: AMIODARONE
  17. ASPIRIN. [Concomitant]
     Active Substance: ASPIRIN
  18. ZOLPIDEM [Concomitant]
     Active Substance: ZOLPIDEM TARTRATE

REACTIONS (2)
  - Pulmonary renal syndrome [Recovering/Resolving]
  - Anti-neutrophil cytoplasmic antibody positive vasculitis [Recovering/Resolving]
